FAERS Safety Report 4619542-9 (Version None)
Quarter: 2005Q2

REPORT INFORMATION
  Report Type: 
  Country: None (occurrence: None)
  Receive Date: 20050321
  Receipt Date: 20040722
  Transmission Date: 20051028
  Serious: Yes (Other)
  Sender: FDA-Public Use
  Company Number: 2004-07-1416

PATIENT
  Age: 41 Year
  Sex: Male
  Weight: 87.5442 kg

DRUGS (3)
  1. PEG-INTRON [Suspect]
     Indication: HEPATITIS C
     Dosage: 150 MCG QWK SUBCUTANEOUS;  120 MCG QWK SUBCUTANEOUS
     Route: 058
     Dates: start: 20040531
  2. REBETOL [Suspect]
     Indication: HEPATITIS C
     Dosage: 1200 MG ORAL
     Route: 048
     Dates: start: 20040531
  3. CLARITIN [Concomitant]

REACTIONS (5)
  - ANAEMIA [None]
  - COUGH [None]
  - DYSPNOEA [None]
  - NEUTROPHIL COUNT DECREASED [None]
  - PNEUMONITIS [None]
